FAERS Safety Report 4869583-1 (Version None)
Quarter: 2005Q4

REPORT INFORMATION
  Report Type: 
  Country: None (occurrence: None)
  Receive Date: 20051227
  Receipt Date: 20051215
  Transmission Date: 20060501
  Serious: Yes (Hospitalization)
  Sender: FDA-Public Use
  Company Number: TCI2003A03639

PATIENT
  Age: 59 Year
  Sex: Male

DRUGS (5)
  1. ACTOS [Suspect]
     Indication: DIABETES MELLITUS NON-INSULIN-DEPENDENT
     Dosage: 30 MG, PER ORAL
     Route: 048
     Dates: start: 20000509, end: 20000607
  2. FAMOTIDINE [Suspect]
     Indication: GASTRITIS
     Dosage: 40 MG (40 MG, 1 D) PER ORAL
     Route: 048
     Dates: start: 20000517, end: 20000607
  3. DAONIL (GLIBENCLAMIDE) [Concomitant]
  4. DIBETOS B (BUFORMIN HYDROCHLORIDE) [Concomitant]
  5. ENALAPRIL MALEATE [Concomitant]

REACTIONS (1)
  - THROMBOCYTOPENIA [None]
